APPROVED DRUG PRODUCT: MAXIPIME
Active Ingredient: CEFEPIME HYDROCHLORIDE
Strength: EQ 2GM BASE/VIAL **Federal Register determination that product was not discontinued or withdrawn for safety or effectiveness reasons**
Dosage Form/Route: INJECTABLE;INJECTION
Application: N050679 | Product #003
Applicant: HOSPIRA INC
Approved: Jan 18, 1996 | RLD: Yes | RS: No | Type: DISCN